FAERS Safety Report 16027280 (Version 1)
Quarter: 2019Q1

REPORT INFORMATION
  Report Type: Spontaneous
  Country: JP (occurrence: JP)
  Receive Date: 20190303
  Receipt Date: 20190303
  Transmission Date: 20190418
  Serious: Yes (Other)
  Sender: FDA-Public Use
  Company Number: JP-STRIDES ARCOLAB LIMITED-2019SP001854

PATIENT
  Age: 50 Year
  Sex: Male

DRUGS (6)
  1. TACROLIMUS. [Suspect]
     Active Substance: TACROLIMUS
     Indication: PROPHYLAXIS AGAINST GRAFT VERSUS HOST DISEASE
     Dosage: UNK
     Route: 065
  2. ACYCLOVIR                          /00587301/ [Concomitant]
     Active Substance: ACYCLOVIR
     Indication: INFECTION PROPHYLAXIS
     Dosage: UNK
     Route: 065
  3. CYCLOPHOSPHAMIDE. [Concomitant]
     Active Substance: CYCLOPHOSPHAMIDE
     Indication: BONE MARROW CONDITIONING REGIMEN
     Dosage: UNK
     Route: 065
  4. MYCOPHENOLATE MOFETIL. [Suspect]
     Active Substance: MYCOPHENOLATE MOFETIL
     Indication: PROPHYLAXIS AGAINST GRAFT VERSUS HOST DISEASE
     Dosage: 1000 MG, EVERY 8 HRS, FROM DAY 1-30 OF TRANSPLANTATION
     Route: 065
  5. VALACYCLOVIR                       /01269701/ [Concomitant]
     Active Substance: VALACYCLOVIR HYDROCHLORIDE
     Indication: INFECTION PROPHYLAXIS
     Dosage: UNK
     Route: 065
  6. MYCOPHENOLATE MOFETIL. [Suspect]
     Active Substance: MYCOPHENOLATE MOFETIL
     Dosage: UNK, DOSE TAPERRED AT THE RATE 750 MG/WEEK
     Route: 065

REACTIONS (11)
  - Altered state of consciousness [Unknown]
  - Status epilepticus [Unknown]
  - Hypertension [Unknown]
  - Off label use [Unknown]
  - Autonomic nervous system imbalance [Unknown]
  - Human herpesvirus 6 infection [Recovered/Resolved]
  - Encephalitis [Unknown]
  - Hyperhidrosis [Unknown]
  - Temperature regulation disorder [Unknown]
  - Amnesia [Unknown]
  - Constipation [Unknown]
